FAERS Safety Report 24827910 (Version 3)
Quarter: 2025Q1

REPORT INFORMATION
  Report Type: Spontaneous
  Country: NL (occurrence: NL)
  Receive Date: 20250109
  Receipt Date: 20250314
  Transmission Date: 20250408
  Serious: Yes (Other)
  Sender: GILEAD
  Company Number: NL-GILEAD-2025-0699419

PATIENT
  Sex: Female

DRUGS (7)
  1. LENACAPAVIR [Suspect]
     Active Substance: LENACAPAVIR
     Indication: HIV-2 infection
     Route: 048
     Dates: start: 20211202, end: 20230203
  2. LENACAPAVIR [Suspect]
     Active Substance: LENACAPAVIR
     Route: 058
     Dates: start: 20211202, end: 20230203
  3. DARUNAVIR [Concomitant]
     Active Substance: DARUNAVIR
     Dates: start: 201504
  4. DOLUTEGRAVIR [Concomitant]
     Active Substance: DOLUTEGRAVIR
     Dosage: UNK, BID
     Dates: start: 201612, end: 202207
  5. BICTEGRAVIR [Concomitant]
     Active Substance: BICTEGRAVIR
     Dates: start: 202207
  6. EMTRICITABINE\TENOFOVIR [Concomitant]
     Active Substance: EMTRICITABINE\TENOFOVIR
     Dates: start: 201902
  7. BIKTARVY [Concomitant]
     Active Substance: BICTEGRAVIR SODIUM\EMTRICITABINE\TENOFOVIR ALAFENAMIDE FUMARATE

REACTIONS (5)
  - Viral load increased [Unknown]
  - Treatment failure [Unknown]
  - Drug resistance mutation [Unknown]
  - Virologic failure [Unknown]
  - Off label use [Unknown]

NARRATIVE: CASE EVENT DATE: 20220120
